FAERS Safety Report 4777125-4 (Version None)
Quarter: 2005Q3

REPORT INFORMATION
  Report Type: 
  Country: None (occurrence: None)
  Receive Date: 20050915
  Receipt Date: 20050907
  Transmission Date: 20060218
  Serious: Yes (Other)
  Sender: FDA-Public Use
  Company Number: 2005-09-0176

PATIENT
  Sex: Female

DRUGS (2)
  1. LORATADINE [Suspect]
     Dosage: ORAL
     Route: 048
  2. .......... [Concomitant]

REACTIONS (1)
  - CONVULSION [None]
